FAERS Safety Report 6569398-2 (Version None)
Quarter: 2010Q1

REPORT INFORMATION
  Report Type: 
  Country: None (occurrence: None)
  Receive Date: 20100204
  Receipt Date: 20100126
  Transmission Date: 20100710
  Serious: Yes (Life-Threatening, Hospitalization)
  Sender: FDA-Public Use
  Company Number: DE-RANBAXY-2009RR-25695

PATIENT
  Age: 47 Year
  Sex: Male

DRUGS (1)
  1. PARACETAMOL [Suspect]
     Indication: TOOTHACHE
     Dosage: 500 MG, UNK
     Route: 048
     Dates: start: 20090330, end: 20090330

REACTIONS (2)
  - ACUTE HEPATIC FAILURE [None]
  - DRUG TOXICITY [None]
